FAERS Safety Report 7728585-8 (Version None)
Quarter: 2011Q3

REPORT INFORMATION
  Report Type: 
  Country: None (occurrence: None)
  Receive Date: 20110831
  Receipt Date: 20110831
  Transmission Date: 20111222
  Serious: No
  Sender: FDA-Public Use
  Company Number: None

PATIENT
  Age: 80 Year
  Sex: Female

DRUGS (7)
  1. ZOCOR [Concomitant]
  2. REVLIMID [Suspect]
     Indication: MYELODYSPLASTIC SYNDROME
     Dosage: 5MG DAILY ORALLY
     Route: 048
     Dates: start: 20110825
  3. NEUPOGEN [Concomitant]
  4. MULTI-VITAMIN [Concomitant]
  5. INSULIN [Concomitant]
  6. METFORMIN HCL [Concomitant]
  7. LISINOPRIL [Concomitant]

REACTIONS (1)
  - HOSPICE CARE [None]
